FAERS Safety Report 18660800 (Version 1)
Quarter: 2020Q4

REPORT INFORMATION
  Report Type: Spontaneous
  Country: FR (occurrence: FR)
  Receive Date: 20201224
  Receipt Date: 20201224
  Transmission Date: 20210114
  Serious: Yes (Hospitalization)
  Sender: FDA-Public Use
  Company Number: FR-ELI_LILLY_AND_COMPANY-FR202012011197

PATIENT
  Age: 16 Year
  Sex: Female
  Weight: 54 kg

DRUGS (3)
  1. LARGACTIL [CHLORPROMAZINE HYDROCHLORIDE] [Suspect]
     Active Substance: CHLORPROMAZINE HYDROCHLORIDE
     Indication: SUICIDAL BEHAVIOUR
     Dosage: 375 MG, UNKNOWN
     Route: 048
     Dates: start: 20200426, end: 20200426
  2. FLUOXETINE [Suspect]
     Active Substance: FLUOXETINE HYDROCHLORIDE
     Indication: SUICIDAL BEHAVIOUR
     Dosage: 420 MG, UNKNOWN
     Route: 048
     Dates: start: 20200426, end: 20200426
  3. MOGADON [Suspect]
     Active Substance: NITRAZEPAM
     Indication: SUICIDAL BEHAVIOUR
     Dosage: 50 MG, UNKNOWN
     Route: 048
     Dates: start: 20200426, end: 20200426

REACTIONS (2)
  - Coma [Not Recovered/Not Resolved]
  - Miosis [Not Recovered/Not Resolved]

NARRATIVE: CASE EVENT DATE: 20200426
